FAERS Safety Report 15403119 (Version 1)
Quarter: 2018Q3

REPORT INFORMATION
  Report Type: Spontaneous
  Country: US (occurrence: US)
  Receive Date: 20180918
  Receipt Date: 20180918
  Transmission Date: 20181010
  Serious: Yes (Hospitalization)
  Sender: FDA-Public Use
  Company Number: None

PATIENT
  Sex: Female

DRUGS (19)
  1. CELEBREX [Concomitant]
     Active Substance: CELECOXIB
  2. CYMBALTA [Concomitant]
     Active Substance: DULOXETINE HYDROCHLORIDE
  3. MELATONIN [Concomitant]
     Active Substance: MELATONIN
  4. TYLENOL [Concomitant]
     Active Substance: ACETAMINOPHEN
  5. AZELASTINE. [Concomitant]
     Active Substance: AZELASTINE HYDROCHLORIDE
  6. IMITREX [Concomitant]
     Active Substance: SUMATRIPTAN SUCCINATE
  7. CALCIUM [Concomitant]
     Active Substance: CALCIUM
  8. FLONASE ALGY [Concomitant]
  9. BIOTIN [Concomitant]
     Active Substance: BIOTIN
  10. DULOXETINE. [Concomitant]
     Active Substance: DULOXETINE
  11. PROBIOTIC [Concomitant]
     Active Substance: PROBIOTICS NOS
  12. VITAMIN B [Concomitant]
     Active Substance: VITAMIN B
  13. VITAMIN B?2 [Concomitant]
  14. VITAMIN D3 [Concomitant]
     Active Substance: CHOLECALCIFEROL
  15. MICROGESTIN [Concomitant]
     Active Substance: ETHINYL ESTRADIOL\NORETHINDRONE ACETATE
  16. MYRBETRIQ [Concomitant]
     Active Substance: MIRABEGRON
  17. NEXIUM [Concomitant]
     Active Substance: ESOMEPRAZOLE MAGNESIUM
  18. ENBREL [Suspect]
     Active Substance: ETANERCEPT
     Indication: RHEUMATOID ARTHRITIS
     Dosage: ?          OTHER FREQUENCY:QWK;?
     Route: 058
     Dates: start: 20180126
  19. OMEGA 3 [Concomitant]
     Active Substance: OMEGA-3 FATTY ACIDS

REACTIONS (3)
  - Nerve block [None]
  - Hysterectomy [None]
  - Condition aggravated [None]
